FAERS Safety Report 12983872 (Version 1)
Quarter: 2016Q4

REPORT INFORMATION
  Report Type: Spontaneous
  Country: VN (occurrence: VN)
  Receive Date: 20161129
  Receipt Date: 20161129
  Transmission Date: 20170207
  Serious: Yes (Death)
  Sender: FDA-Public Use
  Company Number: VN-ROCHE-1840081

PATIENT
  Sex: Male

DRUGS (6)
  1. SODIUM BICARBONATE I.V. [Concomitant]
  2. TARCEVA [Suspect]
     Active Substance: ERLOTINIB HYDROCHLORIDE
     Indication: TRANSITIONAL CELL CARCINOMA
     Route: 048
     Dates: start: 20160909
  3. ZOMETA [Concomitant]
     Active Substance: ZOLEDRONIC ACID
     Indication: PRODUCT USED FOR UNKNOWN INDICATION
     Route: 065
     Dates: start: 20161109
  4. NEXIUM [Concomitant]
     Active Substance: ESOMEPRAZOLE MAGNESIUM
     Route: 065
  5. ATEZOLIZUMAB [Suspect]
     Active Substance: ATEZOLIZUMAB
     Indication: TRANSITIONAL CELL CARCINOMA
     Dosage: 1200 MG (1 BOTTLE ) DILUTED IN 250 ML SODIUM CHLORIDE 0.9%, IV-DRIP, 30 DROPS/ FIRST 30 MIN THEN INC
     Route: 041
     Dates: start: 20161101, end: 20161101
  6. NEXIUM [Concomitant]
     Active Substance: ESOMEPRAZOLE MAGNESIUM
     Route: 042

REACTIONS (4)
  - Pruritus [Unknown]
  - Off label use [Unknown]
  - Therapy non-responder [Unknown]
  - Disease progression [Fatal]
